FAERS Safety Report 15265566 (Version 2)
Quarter: 2018Q3

REPORT INFORMATION
  Report Type: Report from Study
  Country: MX (occurrence: MX)
  Receive Date: 20180810
  Receipt Date: 20180810
  Transmission Date: 20181010
  Serious: Yes (Death)
  Sender: FDA-Public Use
  Company Number: PHHY2017MX177553

PATIENT
  Sex: Male
  Weight: 67 kg

DRUGS (5)
  1. ZARZIO [Suspect]
     Active Substance: FILGRASTIM
     Indication: PRODUCT USED FOR UNKNOWN INDICATION
     Route: 065
  2. GABAPENTIN. [Concomitant]
     Active Substance: GABAPENTIN
     Indication: BACK PAIN
     Dosage: 1 DF, QD
     Route: 048
     Dates: start: 201709
  3. CARBAMAZEPINE. [Suspect]
     Active Substance: CARBAMAZEPINE
     Indication: BACK PAIN
     Dosage: 1 DF, QD
     Route: 048
     Dates: start: 201709
  4. REVOLADE [Suspect]
     Active Substance: ELTROMBOPAG
     Indication: PLATELET COUNT DECREASED
     Dosage: 25 MG, (EVERY 12 HOURS)
     Route: 048
     Dates: start: 201709
  5. TRAMADOL/PARACETAMOL [Suspect]
     Active Substance: ACETAMINOPHEN\TRAMADOL
     Indication: BACK PAIN
     Dosage: 1 DF, QD
     Route: 048
     Dates: start: 201709

REACTIONS (6)
  - Incorrect dose administered [Unknown]
  - Platelet count decreased [Fatal]
  - Feeling abnormal [Unknown]
  - Drug prescribing error [Unknown]
  - Disease progression [Fatal]
  - Product use in unapproved indication [Not Recovered/Not Resolved]
